FAERS Safety Report 25001817 (Version 2)
Quarter: 2025Q1

REPORT INFORMATION
  Report Type: Report from Study
  Country: FR (occurrence: FR)
  Receive Date: 20250224
  Receipt Date: 20250310
  Transmission Date: 20250408
  Serious: Yes (Other)
  Sender: JOHNSON AND JOHNSON
  Company Number: FR-002147023-NVSC2025FR004503

PATIENT
  Age: 84 Year
  Sex: Male
  Weight: 80 kg

DRUGS (11)
  1. ERLEADA [Suspect]
     Active Substance: APALUTAMIDE
     Indication: Prostate cancer
     Route: 065
  2. ERLEADA [Suspect]
     Active Substance: APALUTAMIDE
     Route: 065
     Dates: start: 20241219
  3. ERLEADA [Suspect]
     Active Substance: APALUTAMIDE
     Route: 065
  4. PLUVICTO [Suspect]
     Active Substance: LUTETIUM LU-177 VIPIVOTIDE TETRAXETAN
     Indication: Prostate cancer metastatic
     Route: 042
     Dates: start: 20241219, end: 20241219
  5. PLUVICTO [Suspect]
     Active Substance: LUTETIUM LU-177 VIPIVOTIDE TETRAXETAN
     Route: 042
     Dates: start: 20250130, end: 20250130
  6. LEUPROLIDE [Suspect]
     Active Substance: LEUPROLIDE
     Indication: Prostate cancer
     Route: 065
     Dates: start: 20241015
  7. LEUPROLIDE [Suspect]
     Active Substance: LEUPROLIDE
     Dosage: 30 MG, Q3MO, (SLOW RELEASE FORMULATION)
     Route: 065
  8. AMLODIPINE\VALSARTAN [Concomitant]
     Active Substance: AMLODIPINE\VALSARTAN
     Indication: Hypertension
     Dosage: 5/160 MG, QD
     Route: 065
     Dates: start: 20241219
  9. AMLODIPINE\VALSARTAN [Concomitant]
     Active Substance: AMLODIPINE\VALSARTAN
     Dosage: 120 MG, QMO
     Route: 065
  10. XGEVA [Concomitant]
     Active Substance: DENOSUMAB
     Indication: Prostate cancer
     Route: 065
     Dates: start: 20241206
  11. XGEVA [Concomitant]
     Active Substance: DENOSUMAB
     Dosage: 120 MG, QMO
     Route: 065

REACTIONS (3)
  - Hypothyroidism [Unknown]
  - Terminal insomnia [Recovering/Resolving]
  - Insomnia [Recovering/Resolving]

NARRATIVE: CASE EVENT DATE: 20241220
